FAERS Safety Report 15479851 (Version 5)
Quarter: 2018Q4

REPORT INFORMATION
  Report Type: Report from Study
  Country: US (occurrence: US)
  Receive Date: 20181009
  Receipt Date: 20181119
  Transmission Date: 20190205
  Serious: Yes (Hospitalization)
  Sender: FDA-Public Use
  Company Number: US-ACTELION-A-US2018-174237

PATIENT
  Age: 54 Year
  Sex: Female
  Weight: 99.77 kg

DRUGS (10)
  1. ALDACTONE [Concomitant]
     Active Substance: SPIRONOLACTONE
  2. VITAMIN D [Concomitant]
     Active Substance: CHOLECALCIFEROL
  3. OPSUMIT [Suspect]
     Active Substance: MACITENTAN
     Indication: PULMONARY ARTERIAL HYPERTENSION
     Dosage: 10 MG, QD
     Route: 048
     Dates: start: 20140912
  4. UPTRAVI [Suspect]
     Active Substance: SELEXIPAG
     Indication: PULMONARY ARTERIAL HYPERTENSION
     Dosage: 1600 MCG, BID
     Route: 048
     Dates: start: 20170727, end: 20180930
  5. ADCIRCA [Concomitant]
     Active Substance: TADALAFIL
  6. IBUPROFEN. [Concomitant]
     Active Substance: IBUPROFEN
  7. ZYRTEC-D [Concomitant]
     Active Substance: CETIRIZINE HYDROCHLORIDE\PSEUDOEPHEDRINE HYDROCHLORIDE
  8. VELETRI [Suspect]
     Active Substance: EPOPROSTENOL
     Indication: PULMONARY ARTERIAL HYPERTENSION
     Dosage: 10.4 NG/KG, PER MIN
     Route: 042
  9. REVATIO [Concomitant]
     Active Substance: SILDENAFIL CITRATE
  10. OMEPRAZOLE. [Concomitant]
     Active Substance: OMEPRAZOLE

REACTIONS (27)
  - Dyspnoea exertional [Unknown]
  - Restlessness [Unknown]
  - Feeling abnormal [Recovered/Resolved]
  - Right ventricular dysfunction [Unknown]
  - Therapy change [Recovered/Resolved]
  - Flushing [Unknown]
  - Gait inability [Unknown]
  - Catheter site haemorrhage [Unknown]
  - Cough [Unknown]
  - Right ventricular failure [Unknown]
  - Pulmonary arterial pressure abnormal [Unknown]
  - Brain natriuretic peptide increased [Unknown]
  - Central venous catheterisation [Unknown]
  - Right atrial pressure increased [Unknown]
  - Loss of personal independence in daily activities [Unknown]
  - Diarrhoea [Unknown]
  - Tendon injury [Unknown]
  - Rash [Unknown]
  - Headache [Recovered/Resolved]
  - Nausea [Unknown]
  - Pain in jaw [Unknown]
  - Catheter management [Unknown]
  - Dyspnoea [Recovered/Resolved]
  - Catheter site pain [Unknown]
  - Condition aggravated [Unknown]
  - Tendonitis [Unknown]
  - Pain in extremity [Unknown]

NARRATIVE: CASE EVENT DATE: 20180512
